FAERS Safety Report 17273374 (Version 2)
Quarter: 2020Q1

REPORT INFORMATION
  Report Type: Report from Study
  Country: NO (occurrence: NO)
  Receive Date: 20200115
  Receipt Date: 20200325
  Transmission Date: 20200409
  Serious: Yes (Death)
  Sender: FDA-Public Use
  Company Number: NO-PFIZER INC-2020012259

PATIENT
  Weight: 2.9 kg

DRUGS (1)
  1. MORPHINE SULFATE. [Suspect]
     Active Substance: MORPHINE SULFATE
     Dosage: UNK (1.5 CGM)
     Route: 064

REACTIONS (5)
  - Gait disturbance [Fatal]
  - Maternal exposure during pregnancy [Fatal]
  - Cyanosis neonatal [Fatal]
  - Premature baby [Fatal]
  - Neonatal asphyxia [Fatal]
